FAERS Safety Report 24364824 (Version 4)
Quarter: 2025Q1

REPORT INFORMATION
  Report Type: Report from Study
  Country: US (occurrence: US)
  Receive Date: 20240926
  Receipt Date: 20250218
  Transmission Date: 20250409
  Serious: Yes (Other)
  Sender: ABBVIE
  Company Number: US-ABBVIE-5931571

PATIENT
  Age: 47 Year
  Sex: Female

DRUGS (1)
  1. HUMIRA [Suspect]
     Active Substance: ADALIMUMAB
     Indication: Hidradenitis
     Route: 058
     Dates: start: 20240607

REACTIONS (9)
  - Anal fistula [Not Recovered/Not Resolved]
  - Intestinal cyst [Recovering/Resolving]
  - Lipid metabolism disorder [Recovering/Resolving]
  - Anorectal disorder [Unknown]
  - Anorectal disorder [Unknown]
  - Crohn^s disease [Unknown]
  - Hypoaesthesia oral [Not Recovered/Not Resolved]
  - Swelling [Unknown]
  - Genital injury [Not Recovered/Not Resolved]

NARRATIVE: CASE EVENT DATE: 20240101
